FAERS Safety Report 15206940 (Version 1)
Quarter: 2018Q3

REPORT INFORMATION
  Report Type: Spontaneous
  Country: US (occurrence: US)
  Receive Date: 20180727
  Receipt Date: 20180727
  Transmission Date: 20181010
  Serious: No
  Sender: FDA-Public Use
  Company Number: US-BAYER-2018-140614

PATIENT
  Age: 92 Year
  Sex: Male

DRUGS (1)
  1. MIRALAX [Suspect]
     Active Substance: POLYETHYLENE GLYCOL 3350
     Dosage: 17 G IN 8 OZ OF WATER DOSE
     Route: 048
     Dates: start: 2017

REACTIONS (3)
  - Incorrect drug administration duration [Unknown]
  - Nocturia [Unknown]
  - Pollakiuria [Unknown]
